FAERS Safety Report 23312843 (Version 1)
Quarter: 2023Q4

REPORT INFORMATION
  Report Type: Spontaneous
  Country: JP (occurrence: JP)
  Receive Date: 20231219
  Receipt Date: 20231219
  Transmission Date: 20240109
  Serious: Yes (Death, Other)
  Sender: FDA-Public Use
  Company Number: JP-TAKEDA-2023TJP016882

PATIENT
  Age: 80 Year
  Sex: Male
  Weight: 60.5 kg

DRUGS (2)
  1. CABOMETYX [Suspect]
     Active Substance: CABOZANTINIB S-MALATE
     Indication: Hepatocellular carcinoma
     Dosage: 20 MILLIGRAM
     Route: 065
     Dates: start: 20230322, end: 20230328
  2. CABOMETYX [Suspect]
     Active Substance: CABOZANTINIB S-MALATE
     Dosage: 20 MILLIGRAM, QOD
     Route: 065
     Dates: start: 20230329, end: 20230507

REACTIONS (1)
  - Death [Fatal]

NARRATIVE: CASE EVENT DATE: 20230808
